FAERS Safety Report 5366122-6 (Version None)
Quarter: 2007Q2

REPORT INFORMATION
  Report Type: 
  Country: None (occurrence: None)
  Receive Date: 20070516
  Receipt Date: 20061009
  Transmission Date: 20071010
  Serious: Yes (Other)
  Sender: FDA-Public Use
  Company Number: 255980

PATIENT
  Age: 34 Year
  Sex: Female
  Weight: 65.1 kg

DRUGS (2)
  1. NOVOSEVEN [Suspect]
     Indication: VAGINAL HAEMORRHAGE
     Dosage: 200 UG/KG, QD, INTRAVENOUS
     Route: 042
     Dates: start: 20031014, end: 20031015
  2. AUGMENTIN (CLAVULANATE POTASSIUM, AMOXICILLIN SODIUM) [Concomitant]

REACTIONS (1)
  - DEEP VEIN THROMBOSIS [None]
